FAERS Safety Report 9287945 (Version 2)
Quarter: 2013Q2

REPORT INFORMATION
  Report Type: Spontaneous
  Country: ZA (occurrence: ZA)
  Receive Date: 20130514
  Receipt Date: 20130528
  Transmission Date: 20140414
  Serious: Yes (Life-Threatening, Hospitalization, Disabling, Other)
  Sender: FDA-Public Use
  Company Number: ZA-PFIZER INC-2013146994

PATIENT
  Age: 70 Year
  Sex: Female

DRUGS (3)
  1. AMIODARONE HCL [Suspect]
     Dosage: 400MG, ONCE A DAY
     Route: 065
  2. CLEXANE [Suspect]
     Dosage: 80MG, ONCE A DAY
     Route: 058
     Dates: end: 20130407
  3. PRADAXA [Suspect]
     Indication: ATRIAL FIBRILLATION
     Dosage: 110 MG, UNK
     Route: 048
     Dates: start: 20130407, end: 20130407

REACTIONS (2)
  - Haemorrhage intracranial [Recovering/Resolving]
  - Atrial fibrillation [Unknown]
